FAERS Safety Report 18258045 (Version 1)
Quarter: 2020Q3

REPORT INFORMATION
  Report Type: Report from Study
  Country: CA (occurrence: CA)
  Receive Date: 20200911
  Receipt Date: 20200911
  Transmission Date: 20201103
  Serious: Yes (Other)
  Sender: FDA-Public Use
  Company Number: CA-JNJFOC-20200213987

PATIENT
  Age: 14 Year
  Sex: Female
  Weight: 43 kg

DRUGS (1)
  1. REMICADE [Suspect]
     Active Substance: INFLIXIMAB
     Indication: COLITIS ULCERATIVE
     Dosage: ON 08?FEB?2020, 8TH 400 MG INFLIXIMAB INFUSION RECEIVED
     Route: 042
     Dates: start: 20190928

REACTIONS (3)
  - Off label use [Unknown]
  - Product use issue [Unknown]
  - Haematochezia [Unknown]

NARRATIVE: CASE EVENT DATE: 20190928
